FAERS Safety Report 20850990 (Version 1)
Quarter: 2022Q2

REPORT INFORMATION
  Report Type: Spontaneous
  Country: US (occurrence: US)
  Receive Date: 20220519
  Receipt Date: 20220519
  Transmission Date: 20220721
  Serious: Yes (Other)
  Sender: FDA-Public Use
  Company Number: US-GLAXOSMITHKLINE-US2022AMR078213

PATIENT

DRUGS (6)
  1. FLONASE [Suspect]
     Active Substance: FLUTICASONE PROPIONATE
     Indication: Product used for unknown indication
     Dosage: UNK
  2. HUMIRA [Suspect]
     Active Substance: ADALIMUMAB
     Indication: Psoriatic arthropathy
     Dosage: 40 MG, Z (ONE IN TWO WEEKS)
     Route: 058
  3. HUMIRA [Suspect]
     Active Substance: ADALIMUMAB
     Dosage: 40 MG, Z (ONE IN TEN DAYS)
     Route: 058
  4. TOZINAMERAN [Concomitant]
     Active Substance: TOZINAMERAN
     Indication: COVID-19 immunisation
     Dosage: 1ST DOSE OF COVID-19 VACCINE
     Route: 030
     Dates: start: 20210315, end: 20210315
  5. TOZINAMERAN [Concomitant]
     Active Substance: TOZINAMERAN
     Dosage: 2ND DOSE OF COVID-19 VACCINE
     Route: 030
     Dates: start: 20210415, end: 20210415
  6. TOZINAMERAN [Concomitant]
     Active Substance: TOZINAMERAN
     Dosage: BOOSTER DOSE
     Route: 030
     Dates: start: 20210901, end: 20210901

REACTIONS (4)
  - Psoriatic arthropathy [Unknown]
  - Epistaxis [Recovering/Resolving]
  - Asthenia [Unknown]
  - Nail discolouration [Unknown]

NARRATIVE: CASE EVENT DATE: 20220101
